FAERS Safety Report 6748418-6 (Version None)
Quarter: 2010Q2

REPORT INFORMATION
  Report Type: 
  Country: None (occurrence: None)
  Receive Date: 20100527
  Receipt Date: 20100527
  Transmission Date: 20101027
  Serious: No
  Sender: FDA-Public Use
  Company Number: None

PATIENT
  Sex: Female
  Weight: 77.1115 kg

DRUGS (1)
  1. VOLTAREN [Suspect]
     Indication: ANALGESIC THERAPY
     Dosage: MEASURED AMOUNT WITH PAPER STRIPS  4 TIMES A DAY
     Dates: start: 20100429, end: 20100501

REACTIONS (1)
  - DIZZINESS [None]
